FAERS Safety Report 4404195-5 (Version None)
Quarter: 2004Q3

REPORT INFORMATION
  Report Type: 
  Country: None (occurrence: None)
  Receive Date: 20040721
  Receipt Date: 20040721
  Transmission Date: 20050211
  Serious: No
  Sender: FDA-Public Use
  Company Number: None

PATIENT
  Age: 79 Year
  Sex: Male
  Weight: 87.1 kg

DRUGS (29)
  1. CILASTATIN/IMIPENEM [Suspect]
     Indication: SEPSIS
     Dosage: 250 MG IV
     Route: 042
     Dates: start: 20040106, end: 20040107
  2. CEFTRIAXONE [Suspect]
     Indication: SEPSIS
     Dosage: 1 GM IV
     Route: 042
     Dates: start: 20040105, end: 20040106
  3. CEFEPIME [Suspect]
     Indication: SEPSIS
     Dosage: 1 GM IV
     Route: 042
     Dates: start: 20040109, end: 20040112
  4. HYDROCHLOROTHIAZIDE [Concomitant]
  5. BACITRACIN [Concomitant]
  6. DONEPEZIL HCL [Concomitant]
  7. GAUZE PAD [Concomitant]
  8. CEPHALEXIN [Concomitant]
  9. LISINOPRIL [Concomitant]
  10. ATENOLOL [Concomitant]
  11. RANITIDINE [Concomitant]
  12. RABEPRAZOLE SODIUM [Concomitant]
  13. HEPARIN [Concomitant]
  14. FUROSEMIDE [Concomitant]
  15. MIDAZOLAM [Concomitant]
  16. PHOSHATES ENEMA [Concomitant]
  17. COSYNTROPIN /MANNITOL [Concomitant]
  18. FENTANYL [Concomitant]
  19. LEVOFLOXACIN [Concomitant]
  20. LACTULOSE [Concomitant]
  21. TERAZOSIN HCL [Concomitant]
  22. DEXTROSE [Concomitant]
  23. MAGNESIUM SULFATE [Concomitant]
  24. CALCIUM GLUCONATE [Concomitant]
  25. CILASTATIN/IMIPENEM [Concomitant]
  26. VANCOMYCIN [Concomitant]
  27. NOREPINEPHRINE [Concomitant]
  28. AMPICILLIN [Concomitant]
  29. ACYCLOVIR [Concomitant]

REACTIONS (1)
  - CLOSTRIDIAL INFECTION [None]
